FAERS Safety Report 14625546 (Version 1)
Quarter: 2018Q1

REPORT INFORMATION
  Report Type: Spontaneous
  Country: NO (occurrence: NO)
  Receive Date: 20180312
  Receipt Date: 20180312
  Transmission Date: 20180509
  Serious: Yes (Other)
  Sender: FDA-Public Use
  Company Number: NO-BAYER-2018-041073

PATIENT
  Age: 63 Year
  Sex: Male

DRUGS (4)
  1. XOFIGO [Suspect]
     Active Substance: RADIUM RA-223 DICHLORIDE
     Indication: METASTASES TO BONE
     Dosage: 5 DOSES RECEIVED
     Route: 042
     Dates: start: 201703, end: 201707
  2. XOFIGO [Suspect]
     Active Substance: RADIUM RA-223 DICHLORIDE
     Indication: HORMONE-REFRACTORY PROSTATE CANCER
     Dosage: 6 DOSES RECEIVED
     Route: 042
     Dates: start: 201409, end: 201502
  3. ENZALUTAMIDE [Concomitant]
     Active Substance: ENZALUTAMIDE
     Dosage: UNK
     Dates: start: 201512, end: 201707
  4. XOFIGO [Suspect]
     Active Substance: RADIUM RA-223 DICHLORIDE
     Indication: HORMONE-REFRACTORY PROSTATE CANCER
     Dosage: UNK
     Route: 042
     Dates: start: 201707

REACTIONS (5)
  - Blood alkaline phosphatase increased [None]
  - Metastases to soft tissue [None]
  - Prostatic specific antigen increased [None]
  - Nausea [None]
  - Off label use [None]

NARRATIVE: CASE EVENT DATE: 201502
